FAERS Safety Report 13121914 (Version 1)
Quarter: 2017Q1

REPORT INFORMATION
  Report Type: Spontaneous
  Country: US (occurrence: US)
  Receive Date: 20170117
  Receipt Date: 20170117
  Transmission Date: 20170428
  Serious: No
  Sender: FDA-Public Use
  Company Number: US-ACTAVIS-2016-12918

PATIENT
  Sex: Male

DRUGS (1)
  1. HYDROCODONE BITARTRATE AND IBUPROFEN [Suspect]
     Active Substance: HYDROCODONE BITARTRATE\IBUPROFEN
     Indication: COMPLEX REGIONAL PAIN SYNDROME
     Dosage: 1 DF, Q4H
     Route: 048

REACTIONS (1)
  - Migraine [Recovered/Resolved]
